FAERS Safety Report 7996983-3 (Version None)
Quarter: 2011Q4

REPORT INFORMATION
  Report Type: 
  Country: None (occurrence: None)
  Receive Date: 20111221
  Receipt Date: 20111216
  Transmission Date: 20120403
  Serious: Yes (Hospitalization)
  Sender: FDA-Public Use
  Company Number: PHHY2011TR110138

PATIENT
  Sex: Male

DRUGS (1)
  1. EXJADE [Suspect]
     Indication: HAEMOLYTIC ANAEMIA
     Dosage: 500 MG
     Dates: start: 20110524

REACTIONS (1)
  - BRONCHITIS [None]
